FAERS Safety Report 7424198-6 (Version None)
Quarter: 2011Q2

REPORT INFORMATION
  Report Type: 
  Country: None (occurrence: None)
  Receive Date: 20110411
  Receipt Date: 20110401
  Transmission Date: 20111010
  Serious: Yes (Hospitalization)
  Sender: FDA-Public Use
  Company Number: FK201100634

PATIENT
  Age: 15 Year
  Sex: Male

DRUGS (3)
  1. IFOSFAMIDE [Suspect]
     Indication: BONE SARCOMA
     Dosage: 4400 MG, 1 IN 1 D, INTRAVENOUS
     Route: 042
     Dates: start: 20110324, end: 20110328
  2. MESNA [Concomitant]
  3. ETOPOSIDE [Concomitant]

REACTIONS (4)
  - CHILLS [None]
  - PYREXIA [None]
  - RHINORRHOEA [None]
  - PRODUCT STERILITY LACKING [None]
